FAERS Safety Report 8936688 (Version 2)
Quarter: 2012Q4

REPORT INFORMATION
  Report Type: 
  Country: CA (occurrence: CA)
  Receive Date: 20121130
  Receipt Date: 20121214
  Transmission Date: 20130627
  Serious: Yes (Disabling)
  Sender: FDA-Public Use
  Company Number: CA-PFIZER INC-2012269158

PATIENT
  Age: 57 Year
  Sex: Female
  Weight: 50 kg

DRUGS (11)
  1. CHAMPIX [Suspect]
     Indication: SMOKING CESSATION THERAPY
     Dosage: UNK
     Route: 048
     Dates: start: 201112, end: 2012
  2. CHAMPIX [Suspect]
     Dosage: UNK
     Route: 048
     Dates: start: 201206, end: 2012
  3. CHAMPIX [Suspect]
     Dosage: UNK
     Route: 048
     Dates: start: 20121010, end: 20121024
  4. SYMBICORT [Concomitant]
     Dosage: UNK
  5. OMEPRAZOLE [Concomitant]
     Dosage: UNK
  6. DESIPRAMINE [Concomitant]
     Dosage: UNK
  7. CLONAZEPAM [Concomitant]
     Dosage: UNK
  8. CITALOPRAM [Concomitant]
     Dosage: UNK
  9. KETOPROFEN [Concomitant]
     Dosage: UNK
  10. TRANCOTE [Concomitant]
     Dosage: UNK
  11. PRIMIDONE [Concomitant]
     Dosage: UNK

REACTIONS (5)
  - Headache [Recovered/Resolved]
  - Drug ineffective [Unknown]
  - Activities of daily living impaired [Unknown]
  - Insomnia [Not Recovered/Not Resolved]
  - Abnormal dreams [Unknown]
